FAERS Safety Report 9116250 (Version 2)
Quarter: 2013Q2

REPORT INFORMATION
  Report Type: Spontaneous
  Country: FR (occurrence: FR)
  Receive Date: 20130225
  Receipt Date: 20130410
  Transmission Date: 20140414
  Serious: Yes (Other)
  Sender: FDA-Public Use
  Company Number: FR-ABBOTT-13P-056-1052540-00

PATIENT
  Age: 58 Year
  Sex: Female

DRUGS (1)
  1. HUMIRA [Suspect]
     Indication: CROHN^S DISEASE
     Dosage: LOADED DOSE: 160MG (80MG TWICE A WEEK)
     Route: 058
     Dates: start: 20130101, end: 20130105

REACTIONS (2)
  - Purpura [Recovered/Resolved]
  - Cutaneous vasculitis [Recovered/Resolved]
